FAERS Safety Report 10618518 (Version 1)
Quarter: 2014Q4

REPORT INFORMATION
  Report Type: Spontaneous
  Country: US (occurrence: US)
  Receive Date: 20141202
  Receipt Date: 20141202
  Transmission Date: 20150529
  Serious: Yes (Other)
  Sender: FDA-Public Use
  Company Number: US-TEVA-494122USA

PATIENT
  Sex: Female

DRUGS (1)
  1. AZITHROMYCIN [Suspect]
     Active Substance: AZITHROMYCIN ANHYDROUS
     Indication: DIARRHOEA HAEMORRHAGIC
     Dosage: 1000 MILLIGRAM DAILY;

REACTIONS (1)
  - Diarrhoea haemorrhagic [Unknown]
